FAERS Safety Report 6534069-5 (Version None)
Quarter: 2009Q4

REPORT INFORMATION
  Report Type: 
  Country: None (occurrence: None)
  Receive Date: 20091214
  Receipt Date: 20081107
  Transmission Date: 20100525
  Serious: Yes (Other)
  Sender: FDA-Public Use
  Company Number: 588514

PATIENT
  Age: 50 Year
  Sex: Male

DRUGS (2)
  1. PEGASYS [Suspect]
     Indication: HEPATITIS C
     Dosage: 180 UG 1 PER WEEK
     Dates: start: 20030101, end: 20030101
  2. RIBAVIRIN [Suspect]
     Indication: HEPATITIS C
     Dates: start: 20030101, end: 20030101

REACTIONS (14)
  - ANAEMIA [None]
  - DEPRESSION [None]
  - DYSARTHRIA [None]
  - FATIGUE [None]
  - INFECTION SUSCEPTIBILITY INCREASED [None]
  - INFLUENZA LIKE ILLNESS [None]
  - LOSS OF CONSCIOUSNESS [None]
  - PERSONALITY CHANGE [None]
  - PNEUMONIA [None]
  - POVERTY OF THOUGHT CONTENT [None]
  - SEXUAL DYSFUNCTION [None]
  - SOMNOLENCE [None]
  - THINKING ABNORMAL [None]
  - VISUAL IMPAIRMENT [None]
